FAERS Safety Report 5154349-8 (Version None)
Quarter: 2006Q4

REPORT INFORMATION
  Report Type: 
  Country: None (occurrence: None)
  Receive Date: 20061120
  Receipt Date: 20061110
  Transmission Date: 20070319
  Serious: Yes (Death)
  Sender: FDA-Public Use
  Company Number: JP-BOEHRINGER INGELHEIM PHARMACEUTICALS, INC.-2006-DE-05964GD

PATIENT
  Age: 75 Year
  Sex: Female

DRUGS (6)
  1. DIPYRIDAMOLE [Suspect]
     Indication: SJOGREN'S SYNDROME
  2. DIPYRIDAMOLE [Suspect]
     Indication: GLOMERULONEPHRITIS RAPIDLY PROGRESSIVE
  3. PREDNISOLONE [Suspect]
     Indication: SJOGREN'S SYNDROME
  4. PREDNISOLONE [Suspect]
     Indication: GLOMERULONEPHRITIS RAPIDLY PROGRESSIVE
  5. METHYLPREDNISOLONE [Suspect]
     Indication: SJOGREN'S SYNDROME
  6. METHYLPREDNISOLONE [Suspect]
     Indication: GLOMERULONEPHRITIS RAPIDLY PROGRESSIVE

REACTIONS (5)
  - CARDIAC ARREST [None]
  - DRUG INEFFECTIVE [None]
  - GLOMERULONEPHRITIS [None]
  - HAEMODIALYSIS [None]
  - THROMBOTIC THROMBOCYTOPENIC PURPURA [None]
